FAERS Safety Report 7076456 (Version 4)
Quarter: 2013Q2

REPORT INFORMATION
  Report Type: Report from Study
  Country: FR (occurrence: FR)
  Receive Date: 20090810
  Receipt Date: 20130621
  Transmission Date: 20140414
  Serious: Yes (Hospitalization, Other)
  Sender: FDA-Public Use
  Company Number: PHHY2009FR31288

PATIENT
  Age: 72 Year
  Sex: Male
  Weight: 86 kg

DRUGS (6)
  1. STI571 [Suspect]
     Indication: CHRONIC MYELOID LEUKAEMIA
     Dosage: 400 MG, QD
     Route: 048
     Dates: start: 20030905
  2. XATRAL [Concomitant]
     Indication: PROSTATIC ADENOMA
     Dosage: UNK UKN, UNK
     Dates: start: 200209
  3. DAONIL [Concomitant]
     Indication: TYPE 2 DIABETES MELLITUS
     Dosage: UNK UKN, UNK
     Dates: start: 200209
  4. DIAMICRON [Concomitant]
     Indication: TYPE 2 DIABETES MELLITUS
     Dosage: UNK UKN, UNK
     Dates: start: 200209
  5. FLUDEX LP [Concomitant]
     Indication: HYPERTENSION
     Dosage: UNK UKN, UNK
     Dates: start: 200209
  6. TRIMETAZIDINE [Concomitant]
     Indication: MYOCARDIAL ISCHAEMIA
     Dosage: UNK UKN, UNK

REACTIONS (7)
  - Supraventricular extrasystoles [Unknown]
  - Gastric polyps [Unknown]
  - Gastritis [Unknown]
  - Chest pain [Recovered/Resolved]
  - Benign prostatic hyperplasia [Unknown]
  - Hypertonic bladder [Unknown]
  - Oesophagitis [Unknown]
